FAERS Safety Report 7547381-8 (Version None)
Quarter: 2011Q2

REPORT INFORMATION
  Report Type: 
  Country: None (occurrence: None)
  Receive Date: 20110614
  Receipt Date: 20110609
  Transmission Date: 20111010
  Serious: Yes (Hospitalization)
  Sender: FDA-Public Use
  Company Number: BR-ABBOTT-11P-020-0731485-00

PATIENT
  Sex: Female
  Weight: 58 kg

DRUGS (4)
  1. HUMIRA [Suspect]
     Indication: CROHN'S DISEASE
     Route: 058
     Dates: end: 20110420
  2. HUMIRA [Suspect]
     Dosage: INDUCTION DOSE
     Route: 058
  3. NORIPURUM [Concomitant]
     Indication: ANAEMIA
  4. HUMIRA [Suspect]
     Dosage: INDUCTION DOSE
     Route: 058

REACTIONS (17)
  - PHARYNGITIS [None]
  - PLEURITIC PAIN [None]
  - ALOPECIA [None]
  - HYPOTONIA [None]
  - HAEMOGLOBIN DECREASED [None]
  - FATIGUE [None]
  - INJECTION SITE HAEMORRHAGE [None]
  - COMPUTERISED TOMOGRAM ABNORMAL [None]
  - PNEUMONIA BACTERIAL [None]
  - CHILLS [None]
  - DECREASED APPETITE [None]
  - ASTHENIA [None]
  - BLOOD SODIUM DECREASED [None]
  - CHEST PAIN [None]
  - SKIN LESION [None]
  - PULMONARY OEDEMA [None]
  - PYREXIA [None]
